FAERS Safety Report 5054087-6 (Version None)
Quarter: 2006Q3

REPORT INFORMATION
  Report Type: 
  Country: None (occurrence: None)
  Receive Date: 20060713
  Receipt Date: 20060630
  Transmission Date: 20061208
  Serious: Yes (Hospitalization)
  Sender: FDA-Public Use
  Company Number: GXKR2006ES03716

PATIENT
  Age: 7 Year
  Sex: Female

DRUGS (2)
  1. AMOXICILLIN-CLAVULANIC ACID (NGX)(AMOXICILLIN, CLAVULANATE) UNKNOWN [Suspect]
     Indication: PYREXIA
  2. ACETAMINOPHEN [Suspect]
     Indication: MONONUCLEOSIS SYNDROME

REACTIONS (5)
  - DRUG INTERACTION [None]
  - ENANTHEMA [None]
  - EPSTEIN-BARR VIRUS ANTIBODY POSITIVE [None]
  - ERYTHEMA MULTIFORME [None]
  - TYPE IV HYPERSENSITIVITY REACTION [None]
